FAERS Safety Report 20205117 (Version 1)
Quarter: 2021Q4

REPORT INFORMATION
  Report Type: Spontaneous
  Country: US (occurrence: None)
  Receive Date: 20211220
  Receipt Date: 20211220
  Transmission Date: 20220303
  Serious: No
  Sender: FDA-Public Use
  Company Number: US-MDD US Operations-SUP202105-001022

PATIENT
  Age: 53 Year
  Sex: Female

DRUGS (10)
  1. OXCARBAZEPINE [Suspect]
     Active Substance: OXCARBAZEPINE
     Indication: Product used for unknown indication
  2. BUPROPION [Concomitant]
     Active Substance: BUPROPION
  3. FLUVOXAMINE [Concomitant]
     Active Substance: FLUVOXAMINE
  4. LISINOPRIL [Concomitant]
     Active Substance: LISINOPRIL
  5. METHYLPHENIDATE [Concomitant]
     Active Substance: METHYLPHENIDATE
  6. MELATONIN [Concomitant]
     Active Substance: MELATONIN
  7. PREGABALIN [Concomitant]
     Active Substance: PREGABALIN
  8. RIVAROXABAN [Concomitant]
     Active Substance: RIVAROXABAN
  9. VERAPAMIL [Concomitant]
     Active Substance: VERAPAMIL HYDROCHLORIDE
  10. LURASIDONE [Interacting]
     Active Substance: LURASIDONE
     Indication: Product used for unknown indication

REACTIONS (1)
  - Drug interaction [Unknown]
